FAERS Safety Report 23915437 (Version 1)
Quarter: 2024Q2

REPORT INFORMATION
  Report Type: Spontaneous
  Country: US (occurrence: US)
  Receive Date: 20240529
  Receipt Date: 20240529
  Transmission Date: 20240715
  Serious: No
  Sender: FDA-Public Use
  Company Number: US-PFIZER INC-202400179472

PATIENT
  Age: 61 Year
  Sex: Male

DRUGS (2)
  1. INLYTA [Suspect]
     Active Substance: AXITINIB
     Dosage: 6 DF, 2X/DAY (3 TABLETS (3 MG TOTAL) IN THE MORNING AND 3 TABLETS (3 MG TOTAL) BEFORE BEDTIME)
     Dates: start: 202308
  2. KEYTRUDA [Suspect]
     Active Substance: PEMBROLIZUMAB

REACTIONS (3)
  - Blood pressure increased [Recovered/Resolved]
  - Thyroid function test abnormal [Recovered/Resolved]
  - Dehydration [Recovered/Resolved]
